FAERS Safety Report 4481189-5 (Version None)
Quarter: 2004Q3

REPORT INFORMATION
  Report Type: 
  Country: None (occurrence: None)
  Receive Date: 20040923
  Receipt Date: 20040706
  Transmission Date: 20050211
  Serious: No
  Sender: FDA-Public Use
  Company Number: USA040259299

PATIENT
  Age: 79 Year
  Sex: Female
  Weight: 55.7924 kg

DRUGS (3)
  1. FORTEO [Suspect]
     Indication: OSTEOPOROSIS
     Dosage: 20 UG DAY
     Dates: start: 20040130
  2. LANOXIN [Concomitant]
  3. CALCIUM [Concomitant]

REACTIONS (7)
  - FALL [None]
  - INJECTION SITE ERYTHEMA [None]
  - INJECTION SITE HAEMORRHAGE [None]
  - INJECTION SITE PAIN [None]
  - MUSCLE CRAMP [None]
  - SCIATICA [None]
  - URINE CALCIUM [None]
